FAERS Safety Report 23388071 (Version 1)
Quarter: 2024Q1

REPORT INFORMATION
  Report Type: Spontaneous
  Country: US (occurrence: None)
  Receive Date: 20240109
  Receipt Date: 20240109
  Transmission Date: 20240409
  Serious: Yes (Disabling, Other)
  Sender: FDA-Public Use
  Company Number: None

PATIENT
  Age: 80 Year
  Sex: Female
  Weight: 49.44 kg

DRUGS (14)
  1. METHYLPREDNISOLONE [Suspect]
     Active Substance: METHYLPREDNISOLONE
     Indication: Chest pain
     Dosage: OTHER FREQUENCY : 6 PILLS;?
     Route: 048
     Dates: start: 20231003, end: 20231008
  2. METHYLPREDNISOLONE [Suspect]
     Active Substance: METHYLPREDNISOLONE
     Indication: Spinal pain
     Dosage: OTHER FREQUENCY : 5 ;?
     Route: 048
     Dates: start: 20231004
  3. METHYLPREDNISOLONE [Suspect]
     Active Substance: METHYLPREDNISOLONE
     Dosage: OTHER FREQUENCY : 4;?
     Route: 048
     Dates: start: 20231005
  4. METHYLPREDNISOLONE [Suspect]
     Active Substance: METHYLPREDNISOLONE
     Dosage: OTHER FREQUENCY : 3;?
     Route: 048
     Dates: start: 20231006
  5. METHYLPREDNISOLONE [Suspect]
     Active Substance: METHYLPREDNISOLONE
     Dosage: OTHER FREQUENCY : 3;?
     Route: 048
     Dates: start: 20231006
  6. METHYLPREDNISOLONE [Suspect]
     Active Substance: METHYLPREDNISOLONE
     Dosage: OTHER FREQUENCY : 2;?
  7. METHYLPREDNISOLONE [Suspect]
     Active Substance: METHYLPREDNISOLONE
     Dosage: OTHER FREQUENCY : 1;?
     Route: 048
  8. HUMALOG [Concomitant]
     Active Substance: INSULIN LISPRO
  9. HUMALOG KWIKPEN WITH UNIFINE PENTIPS NEEDLES [Concomitant]
  10. TRUE METRIX BLOOD  SUGAR TESTING METER [Concomitant]
  11. TRUE METRIX BLOOD SUGAR TESTING STRIPS [Concomitant]
  12. ALBUTEROL [Concomitant]
     Active Substance: ALBUTEROL
  13. TYLENOL [Concomitant]
     Active Substance: ACETAMINOPHEN
  14. VITAMIN D3 [Concomitant]
     Active Substance: CHOLECALCIFEROL

REACTIONS (6)
  - Asthenia [None]
  - Hyperhidrosis [None]
  - Blood glucose increased [None]
  - Confusional state [None]
  - Dizziness [None]
  - Movement disorder [None]

NARRATIVE: CASE EVENT DATE: 20201003
